FAERS Safety Report 19465454 (Version 2)
Quarter: 2021Q4

REPORT INFORMATION
  Report Type: Spontaneous
  Country: US (occurrence: US)
  Receive Date: 20210624
  Receipt Date: 20211221
  Transmission Date: 20220304
  Serious: Yes (Other)
  Sender: FDA-Public Use
  Company Number: US-GILEAD-2021-0537437

PATIENT
  Age: 49 Year
  Sex: Male
  Weight: 98.429 kg

DRUGS (42)
  1. TRUVADA [Suspect]
     Active Substance: EMTRICITABINE\TENOFOVIR DISOPROXIL FUMARATE
     Indication: HIV infection
     Dosage: UNK
     Route: 048
     Dates: start: 200710, end: 2016
  2. CRIXIVAN [Concomitant]
     Active Substance: INDINAVIR SULFATE
  3. DESCOVY [Concomitant]
     Active Substance: EMTRICITABINE\TENOFOVIR ALAFENAMIDE FUMARATE
  4. EPIVIR [Concomitant]
     Active Substance: LAMIVUDINE
  5. ISENTRESS [Concomitant]
     Active Substance: RALTEGRAVIR POTASSIUM
  6. KALETRA [Concomitant]
     Active Substance: LOPINAVIR\RITONAVIR
  7. NORVIR [Concomitant]
     Active Substance: RITONAVIR
  8. ODEFSEY [Concomitant]
     Active Substance: EMTRICITABINE\RILPIVIRINE HYDROCHLORIDE\TENOFOVIR ALAFENAMIDE FUMARATE
  9. PREZISTA [Concomitant]
     Active Substance: DARUNAVIR ETHANOLATE
  10. RETROVIR [Concomitant]
     Active Substance: ZIDOVUDINE
  11. TIVICAY [Concomitant]
     Active Substance: DOLUTEGRAVIR SODIUM
  12. VIDEX [Concomitant]
     Active Substance: DIDANOSINE
  13. VIRACEPT [Concomitant]
     Active Substance: NELFINAVIR MESYLATE
  14. ZERIT [Concomitant]
     Active Substance: STAVUDINE
  15. DEXAMETHASONE [Concomitant]
     Active Substance: DEXAMETHASONE
  16. ONDANSETRON [Concomitant]
     Active Substance: ONDANSETRON
  17. SULFAMERAZINE;TRIMETHOPRIM [Concomitant]
  18. VALACYCLOVIR [Concomitant]
     Active Substance: VALACYCLOVIR HYDROCHLORIDE
  19. DULOXETINE [Concomitant]
     Active Substance: DULOXETINE
  20. MERCAPTOPURINE [Concomitant]
     Active Substance: MERCAPTOPURINE
  21. METHOTREXATE [Concomitant]
     Active Substance: METHOTREXATE
  22. PREDNISONE [Concomitant]
     Active Substance: PREDNISONE
  23. OMEPRAZOLE [Concomitant]
     Active Substance: OMEPRAZOLE
  24. NYSTATIN [Concomitant]
     Active Substance: NYSTATIN
  25. AMOXICILLIN [Concomitant]
     Active Substance: AMOXICILLIN
  26. OSELTAMIVIR [Concomitant]
     Active Substance: OSELTAMIVIR
  27. METRONIDAZOLE [Concomitant]
     Active Substance: METRONIDAZOLE
  28. PANTOPRAZOLE [Concomitant]
     Active Substance: PANTOPRAZOLE
  29. TRAMADOL [Concomitant]
     Active Substance: TRAMADOL
  30. HYDROCHLOROTHIAZIDE [Concomitant]
     Active Substance: HYDROCHLOROTHIAZIDE
  31. ROSUVASTATIN [Concomitant]
     Active Substance: ROSUVASTATIN
  32. IMATINIB [Concomitant]
     Active Substance: IMATINIB
  33. ALLOPURINOL [Concomitant]
     Active Substance: ALLOPURINOL
  34. HARVONI [Concomitant]
     Active Substance: LEDIPASVIR\SOFOSBUVIR
  35. LEDIPASVIR [Concomitant]
     Active Substance: LEDIPASVIR
  36. XANAX [Concomitant]
     Active Substance: ALPRAZOLAM
  37. LORAZEPAM [Concomitant]
     Active Substance: LORAZEPAM
  38. ZETIA [Concomitant]
     Active Substance: EZETIMIBE
  39. LEXIVA [Concomitant]
     Active Substance: FOSAMPRENAVIR CALCIUM
  40. LEXAPRO [Concomitant]
     Active Substance: ESCITALOPRAM OXALATE
  41. FENOFIBRATE [Concomitant]
     Active Substance: FENOFIBRATE
  42. CYMBALTA [Concomitant]
     Active Substance: DULOXETINE HYDROCHLORIDE

REACTIONS (11)
  - Spinal fracture [Not Recovered/Not Resolved]
  - Ankle fracture [Unknown]
  - Rib fracture [Recovered/Resolved]
  - Osteoporosis [Not Recovered/Not Resolved]
  - Malignant neoplasm of spinal cord [Unknown]
  - Emotional distress [Not Recovered/Not Resolved]
  - Anhedonia [Not Recovered/Not Resolved]
  - Anxiety [Not Recovered/Not Resolved]
  - Pain [Not Recovered/Not Resolved]
  - Bone density decreased [Not Recovered/Not Resolved]
  - Arthralgia [Unknown]

NARRATIVE: CASE EVENT DATE: 20121201
